FAERS Safety Report 6593772-1 (Version None)
Quarter: 2010Q1

REPORT INFORMATION
  Report Type: 
  Country: None (occurrence: None)
  Receive Date: 20100212
  Receipt Date: 20100120
  Transmission Date: 20100710
  Serious: Yes (Hospitalization)
  Sender: FDA-Public Use
  Company Number: APP201000048

PATIENT
  Age: 34 Year
  Sex: Male

DRUGS (1)
  1. METHYLPREDNISOLONE SODIUM SUCCINATE [Suspect]
     Indication: MYOSITIS
     Dosage: 1.5 GM, 1 IN 1 D, UNK

REACTIONS (12)
  - ADRENAL ADENOMA [None]
  - BLOOD PH DECREASED [None]
  - DYSPHAGIA [None]
  - EYELID PTOSIS [None]
  - HYPERALDOSTERONISM [None]
  - HYPOKALAEMIA [None]
  - MYASTHENIA GRAVIS [None]
  - PCO2 INCREASED [None]
  - PO2 DECREASED [None]
  - RENIN DECREASED [None]
  - RHABDOMYOLYSIS [None]
  - THYMOMA [None]
